FAERS Safety Report 6065037-8 (Version None)
Quarter: 2009Q1

REPORT INFORMATION
  Report Type: 
  Country: None (occurrence: None)
  Receive Date: 20090204
  Receipt Date: 20090126
  Transmission Date: 20090719
  Serious: Yes (Other)
  Sender: FDA-Public Use
  Company Number: AE-AMGEN-UK330339

PATIENT
  Sex: Female

DRUGS (4)
  1. NEULASTIM [Suspect]
     Indication: NEUTROPENIA
     Route: 065
  2. DOXORUBICIN HYDROCHLORIDE [Concomitant]
     Route: 065
  3. CYCLOPHOSPHAMIDE [Concomitant]
     Route: 065
  4. PACLITAXEL [Concomitant]
     Route: 065

REACTIONS (1)
  - FEBRILE NEUTROPENIA [None]
